FAERS Safety Report 24424391 (Version 1)
Quarter: 2024Q4

REPORT INFORMATION
  Report Type: Spontaneous
  Country: US (occurrence: None)
  Receive Date: 20241010
  Receipt Date: 20241010
  Transmission Date: 20250114
  Serious: No
  Sender: Public
  Company Number: None

PATIENT
  Age: 62 Year
  Sex: Female

DRUGS (1)
  1. PROLIA [Suspect]
     Active Substance: DENOSUMAB
     Indication: Stem cell transplant
     Dosage: OTHER FREQUENCY : EVERY3MONTHSASDIR;?
     Route: 058
     Dates: start: 202410

REACTIONS (1)
  - Stem cell transplant [None]
